FAERS Safety Report 4477707-3 (Version None)
Quarter: 2004Q4

REPORT INFORMATION
  Report Type: 
  Country: None (occurrence: None)
  Receive Date: 20041014
  Receipt Date: 20040928
  Transmission Date: 20050328
  Serious: Yes (Hospitalization)
  Sender: FDA-Public Use
  Company Number: 195404

PATIENT
  Age: 52 Year
  Sex: Male

DRUGS (8)
  1. AVONEX [Suspect]
     Indication: MULTIPLE SCLEROSIS
     Dosage: 30 MCG QW IM
     Route: 030
     Dates: start: 20000101, end: 20000101
  2. AVONEX [Suspect]
     Indication: MULTIPLE SCLEROSIS
     Dosage: 30 MCG QW IM
     Route: 030
     Dates: start: 20040315, end: 20040322
  3. ZANAFLEX [Concomitant]
  4. WELLBUTRIN [Concomitant]
  5. DITROPAN [Concomitant]
  6. TYLENOL [Concomitant]
  7. PROVIGIL [Concomitant]
  8. GLUCOSAMINE [Concomitant]

REACTIONS (2)
  - MOVEMENT DISORDER [None]
  - MUSCULOSKELETAL STIFFNESS [None]
